FAERS Safety Report 7402229-7 (Version None)
Quarter: 2011Q1

REPORT INFORMATION
  Report Type: 
  Country: None (occurrence: None)
  Receive Date: 20110330
  Receipt Date: 20110317
  Transmission Date: 20110831
  Serious: Yes (Other)
  Sender: FDA-Public Use
  Company Number: RU-1185165

PATIENT
  Age: 63 Year
  Sex: Male

DRUGS (3)
  1. AZOPT [Suspect]
     Indication: OPEN ANGLE GLAUCOMA
     Dosage: (1 GTT BID OPHTHALMIC)
     Route: 047
     Dates: start: 20060101
  2. QUINAX OPHTHALMIC SOLUTION (QUINAX) [Suspect]
     Dosage: (OPHTHALMIC)
     Route: 047
  3. BETOPTIC [Suspect]
     Dosage: (OPHTHALMIC)
     Route: 047
     Dates: start: 20060101

REACTIONS (6)
  - CONJUNCTIVAL OEDEMA [None]
  - CORNEAL EROSION [None]
  - MUCOUS MEMBRANE DISORDER [None]
  - KERATITIS [None]
  - CONJUNCTIVAL HYPERAEMIA [None]
  - LACRIMATION INCREASED [None]
